FAERS Safety Report 13097524 (Version 1)
Quarter: 2017Q1

REPORT INFORMATION
  Report Type: Spontaneous
  Country: US (occurrence: US)
  Receive Date: 20170108
  Receipt Date: 20170108
  Transmission Date: 20170428
  Serious: Yes (Disabling)
  Sender: FDA-Public Use
  Company Number: None

PATIENT
  Age: 23 Year
  Sex: Male
  Weight: 81 kg

DRUGS (1)
  1. MEFLOQUINE [Suspect]
     Active Substance: MEFLOQUINE
     Route: 048

REACTIONS (5)
  - Anxiety [None]
  - Depression [None]
  - Nightmare [None]
  - Post-traumatic stress disorder [None]
  - Insomnia [None]

NARRATIVE: CASE EVENT DATE: 20060101
